FAERS Safety Report 13725399 (Version 1)
Quarter: 2017Q3

REPORT INFORMATION
  Report Type: Spontaneous
  Country: US (occurrence: US)
  Receive Date: 20170707
  Receipt Date: 20170707
  Transmission Date: 20171127
  Serious: No
  Sender: FDA-Public Use
  Company Number: US-BAYER-2017-130499

PATIENT
  Age: 63 Year
  Sex: Female
  Weight: 83 kg

DRUGS (2)
  1. CLARITIN [Suspect]
     Active Substance: LORATADINE
     Indication: SEASONAL ALLERGY
     Dosage: 1 DF, QD
     Route: 048
     Dates: start: 20170705, end: 20170705
  2. CLARITIN [Suspect]
     Active Substance: LORATADINE
     Indication: MUSCLE SPASMS

REACTIONS (8)
  - Eye disorder [Recovered/Resolved]
  - Product use in unapproved indication [Unknown]
  - Dry throat [Recovered/Resolved]
  - Therapeutic response unexpected [Unknown]
  - Dry eye [Recovered/Resolved]
  - Off label use [Unknown]
  - Oropharyngeal pain [Recovered/Resolved]
  - Drug intolerance [Recovered/Resolved]

NARRATIVE: CASE EVENT DATE: 20170705
